FAERS Safety Report 5145623-X (Version None)
Quarter: 2006Q4

REPORT INFORMATION
  Report Type: 
  Country: None (occurrence: None)
  Receive Date: 20061107
  Receipt Date: 20061013
  Transmission Date: 20070319
  Serious: Yes (Other)
  Sender: FDA-Public Use
  Company Number: US-ALLERGAN-0606322US

PATIENT
  Sex: Male

DRUGS (2)
  1. ACULAR LS [Suspect]
     Indication: CORNEAL EROSION
     Route: 047
     Dates: start: 20061003, end: 20061010
  2. ZYMAR [Suspect]
     Indication: CORNEAL EROSION
     Route: 047
     Dates: start: 20061003, end: 20061010

REACTIONS (5)
  - CORNEAL OPACITY [None]
  - CORNEAL THINNING [None]
  - KERATITIS [None]
  - PHOTOPHOBIA [None]
  - VISION BLURRED [None]
